FAERS Safety Report 8760429 (Version 2)
Quarter: 2012Q4

REPORT INFORMATION
  Report Type: 
  Country: GB (occurrence: GB)
  Receive Date: 20120830
  Receipt Date: 20120830
  Transmission Date: 20130627
  Serious: Yes (Other)
  Sender: FDA-Public Use
  Company Number: GB-VERTEX PHARMACEUTICAL INC.-000000000000001353

PATIENT
  Age: 41 Year
  Sex: Female

DRUGS (3)
  1. VX-950 [Suspect]
     Indication: HEPATITIS C
     Dosage: UNK
     Route: 048
     Dates: start: 20120626
  2. INTERFERON\POLYETHYLENE GLYCOL [Suspect]
     Indication: HEPATITIS C
     Dosage: UNK
     Route: 058
  3. RIBAVIRIN [Suspect]
     Indication: HEPATITIS C
     Dosage: UNK
     Route: 048

REACTIONS (3)
  - Oral mucosal blistering [Not Recovered/Not Resolved]
  - Eczema [Not Recovered/Not Resolved]
  - Blister [Recovered/Resolved]
